FAERS Safety Report 10682401 (Version 1)
Quarter: 2014Q4

REPORT INFORMATION
  Report Type: Spontaneous
  Country: US (occurrence: None)
  Receive Date: 20141229
  Receipt Date: 20141229
  Transmission Date: 20150529
  Serious: No
  Sender: FDA-Public Use
  Company Number: None

PATIENT
  Age: 59 Year
  Sex: Female
  Weight: 65.77 kg

DRUGS (2)
  1. LORAZEPAM . [Suspect]
     Active Substance: LORAZEPAM
     Indication: ANXIETY
     Dosage: 1 PILL 3X DAY, THREE TIMES DAILY, TAKEN BY MOUTH
     Route: 048
  2. LORAZEPAM . [Suspect]
     Active Substance: LORAZEPAM
     Indication: INSOMNIA
     Dosage: 1 PILL 3X DAY, THREE TIMES DAILY, TAKEN BY MOUTH
     Route: 048

REACTIONS (3)
  - Feeling abnormal [None]
  - Product substitution issue [None]
  - Product measured potency issue [None]

NARRATIVE: CASE EVENT DATE: 20141227
